FAERS Safety Report 20104528 (Version 1)
Quarter: 2021Q4

REPORT INFORMATION
  Report Type: Spontaneous
  Country: US (occurrence: US)
  Receive Date: 20211123
  Receipt Date: 20211123
  Transmission Date: 20220303
  Serious: No
  Sender: FDA-Public Use
  Company Number: US-AMGEN-USASP2021180618

PATIENT
  Age: 80 Year
  Sex: Male
  Weight: 58.3 kg

DRUGS (3)
  1. MVASI [Suspect]
     Active Substance: BEVACIZUMAB-AWWB
     Indication: Non-small cell lung cancer
     Dosage: 850 MILLIGRAM
     Route: 065
     Dates: start: 20210812
  2. CARBOPLATIN [Concomitant]
     Active Substance: CARBOPLATIN
     Indication: Product used for unknown indication
     Route: 065
  3. PEMETREXED [Concomitant]
     Active Substance: PEMETREXED

REACTIONS (3)
  - Dysphagia [Unknown]
  - Sinus disorder [Unknown]
  - Dysphonia [Unknown]
